FAERS Safety Report 21178987 (Version 1)
Quarter: 2022Q3

REPORT INFORMATION
  Report Type: Spontaneous
  Country: KR (occurrence: KR)
  Receive Date: 20220805
  Receipt Date: 20220805
  Transmission Date: 20221027
  Serious: Yes (Other)
  Sender: FDA-Public Use
  Company Number: KR-JNJFOC-20220753076

PATIENT
  Sex: Female

DRUGS (20)
  1. SPRAVATO [Suspect]
     Active Substance: ESKETAMINE
     Indication: Major depression
     Dates: start: 202101
  2. SPRAVATO [Suspect]
     Active Substance: ESKETAMINE
     Indication: Suicidal ideation
  3. LI [LITHIUM] [Concomitant]
     Dates: start: 201809
  4. LI [LITHIUM] [Concomitant]
     Dates: start: 201809
  5. LI [LITHIUM] [Concomitant]
     Dates: start: 201905, end: 202108
  6. SER [Concomitant]
     Dates: start: 202108
  7. SER [Concomitant]
     Dates: start: 202112
  8. SER [Concomitant]
     Dates: start: 202201
  9. SER [Concomitant]
     Dates: start: 202206
  10. QUETIAPINE [Concomitant]
     Active Substance: QUETIAPINE
     Dates: start: 2018
  11. QUETIAPINE [Concomitant]
     Active Substance: QUETIAPINE
     Dates: start: 2018
  12. QUETIAPINE [Concomitant]
     Active Substance: QUETIAPINE
     Dates: start: 2018
  13. QUETIAPINE [Concomitant]
     Active Substance: QUETIAPINE
     Dates: start: 201808
  14. QUETIAPINE [Concomitant]
     Active Substance: QUETIAPINE
     Dates: start: 201905
  15. QUETIAPINE [Concomitant]
     Active Substance: QUETIAPINE
     Dates: start: 201905
  16. QUETIAPINE [Concomitant]
     Active Substance: QUETIAPINE
     Dates: start: 202108
  17. QUETIAPINE [Concomitant]
     Active Substance: QUETIAPINE
     Dates: start: 202112
  18. ALPRAZOLAM [Concomitant]
     Active Substance: ALPRAZOLAM
     Dates: start: 201907
  19. ALPRAZOLAM [Concomitant]
     Active Substance: ALPRAZOLAM
     Dates: start: 201910
  20. ALPRAZOLAM [Concomitant]
     Active Substance: ALPRAZOLAM
     Dates: start: 202108

REACTIONS (13)
  - Suicide attempt [Unknown]
  - Intentional self-injury [Unknown]
  - Suicidal ideation [Unknown]
  - Self-injurious ideation [Unknown]
  - Sleep disorder [Unknown]
  - Stress [Unknown]
  - Sensory disturbance [Recovered/Resolved]
  - Dizziness [Recovered/Resolved]
  - Blood pressure increased [Recovered/Resolved]
  - Anxiety [Recovered/Resolved]
  - Hypersomnia [Not Recovered/Not Resolved]
  - Derealisation [Unknown]
  - Depression [Not Recovered/Not Resolved]

NARRATIVE: CASE EVENT DATE: 20210101
